FAERS Safety Report 13455260 (Version 1)
Quarter: 2017Q2

REPORT INFORMATION
  Report Type: Spontaneous
  Country: US (occurrence: US)
  Receive Date: 20170419
  Receipt Date: 20170419
  Transmission Date: 20170830
  Serious: No
  Sender: FDA-Public Use
  Company Number: US-PFIZER INC-2017163340

PATIENT
  Sex: Female

DRUGS (1)
  1. BACITRACIN. [Suspect]
     Active Substance: BACITRACIN
     Dosage: UNK
     Route: 061

REACTIONS (3)
  - Drug hypersensitivity [Not Recovered/Not Resolved]
  - Skin irritation [Not Recovered/Not Resolved]
  - Wound secretion [Not Recovered/Not Resolved]
